FAERS Safety Report 9288381 (Version 1)
Quarter: 2013Q2

REPORT INFORMATION
  Report Type: Spontaneous
  Country: US (occurrence: US)
  Receive Date: 20130514
  Receipt Date: 20130514
  Transmission Date: 20140414
  Serious: Yes (Other)
  Sender: FDA-Public Use
  Company Number: US-BANPHARM-20131273

PATIENT
  Age: 45 Year
  Sex: Female
  Weight: 104.31 kg

DRUGS (3)
  1. NAPROXEN SODIUM 220 MG [Suspect]
     Indication: PLANTAR FASCIITIS
     Dosage: 440 MG, BID,
     Route: 048
     Dates: start: 20130325, end: 20130415
  2. NAPROXEN SODIUM 220 MG [Suspect]
     Indication: PLANTAR FASCIITIS
     Dosage: 220 MG, BID,
     Route: 048
     Dates: start: 20130416, end: 20130421
  3. NAPROXEN SODIUM 220 MG [Suspect]
     Indication: PLANTAR FASCIITIS
     Dosage: 220 MG, QD,
     Route: 048
     Dates: start: 20130422, end: 20130424

REACTIONS (3)
  - Vaginal haemorrhage [Not Recovered/Not Resolved]
  - Incorrect dose administered [Unknown]
  - Incorrect drug administration duration [Unknown]
